FAERS Safety Report 5420461-9 (Version None)
Quarter: 2007Q3

REPORT INFORMATION
  Report Type: 
  Country: None (occurrence: None)
  Receive Date: 20070821
  Receipt Date: 20070810
  Transmission Date: 20080115
  Serious: Yes (Other)
  Sender: FDA-Public Use
  Company Number: PHHO2007BR13388

PATIENT
  Age: 42 Year
  Sex: Female

DRUGS (2)
  1. GALVUS MET [Suspect]
     Dosage: 100/850 MG/DAILY
     Route: 048
  2. PLAQUINOL [Concomitant]

REACTIONS (2)
  - AUTOIMMUNE DISORDER [None]
  - PRURITUS [None]
